FAERS Safety Report 8140549-1 (Version None)
Quarter: 2012Q1

REPORT INFORMATION
  Report Type: 
  Country: None (occurrence: None)
  Receive Date: 20120216
  Receipt Date: 20120213
  Transmission Date: 20120608
  Serious: Yes (Other)
  Sender: FDA-Public Use
  Company Number: US-PFIZER INC-2011106569

PATIENT
  Sex: Female
  Weight: 63.492 kg

DRUGS (9)
  1. PROTONIX [Suspect]
     Indication: SCLEROEDEMA
  2. LIPITOR [Concomitant]
     Dosage: 20 MG, UNK
  3. RANITIDINE [Concomitant]
     Dosage: 150 MG, UNK
  4. ASPIRIN [Concomitant]
     Dosage: UNK
  5. MINOCYCLINE [Concomitant]
     Dosage: 50 MG, UNK
  6. VITAMIN D [Concomitant]
  7. PROTONIX [Suspect]
     Indication: OESOPHAGEAL DISORDER
     Dosage: 40 MG, 1X/DAY
  8. ALIGN [Concomitant]
  9. ALPRAZOLAM [Concomitant]
     Dosage: 5 MG, AS NEEDED

REACTIONS (1)
  - BREAST CANCER FEMALE [None]
